FAERS Safety Report 8846818 (Version 2)
Quarter: 2012Q4

REPORT INFORMATION
  Report Type: Spontaneous
  Country: US (occurrence: None)
  Receive Date: 20121016
  Receipt Date: 20121218
  Transmission Date: 20130627
  Serious: Yes (Death, Hospitalization)
  Sender: FDA-Public Use
  Company Number: 2012-0877

PATIENT
  Age: 68 Year
  Sex: Female
  Weight: 60.87 kg

DRUGS (1)
  1. KYPROLIS [Suspect]
     Indication: MULTIPLE MYELOMA
     Dosage: (32 mg, Days 1-5 x3 weeks), intravenous
     Route: 042
     Dates: start: 20120807, end: 20120808

REACTIONS (1)
  - Pancytopenia [None]
